FAERS Safety Report 8901574 (Version 1)
Quarter: 2012Q4

REPORT INFORMATION
  Report Type: Spontaneous
  Country: US (occurrence: None)
  Receive Date: 20121108
  Receipt Date: 20121108
  Transmission Date: 20130627
  Serious: Yes (Other)
  Sender: FDA-Public Use
  Company Number: None

PATIENT
  Age: 67 Year
  Sex: Male
  Weight: 88.45 kg

DRUGS (1)
  1. PHENTERMINE	 15MG [Suspect]
     Dosage: one tablet on time a day
     Dates: start: 20120115, end: 20121022

REACTIONS (1)
  - Drug ineffective [None]
